FAERS Safety Report 24761572 (Version 1)
Quarter: 2024Q4

REPORT INFORMATION
  Report Type: Spontaneous
  Country: US (occurrence: US)
  Receive Date: 20241220
  Receipt Date: 20241220
  Transmission Date: 20250114
  Serious: No
  Sender: EDENBRIDGE PHARMACEUTICALS
  Company Number: EDEN2400279

PATIENT
  Age: 26 Year
  Sex: Female

DRUGS (1)
  1. IVERMECTIN [Suspect]
     Active Substance: IVERMECTIN
     Indication: Infection parasitic
     Dosage: 15 DOSAGE FORM, MONTHLY, (3 TABLETS A DAY FOR 5 DAYS)
     Route: 065
     Dates: start: 202309

REACTIONS (1)
  - Product odour abnormal [Unknown]

NARRATIVE: CASE EVENT DATE: 20241001
